FAERS Safety Report 14261423 (Version 2)
Quarter: 2018Q1

REPORT INFORMATION
  Report Type: Spontaneous
  Country: DE (occurrence: DE)
  Receive Date: 20171208
  Receipt Date: 20180220
  Transmission Date: 20180508
  Serious: Yes (Death)
  Sender: FDA-Public Use
  Company Number: DE-UCBSA-2017048923

PATIENT
  Age: 25 Day
  Sex: Female

DRUGS (1)
  1. KEPPRA [Suspect]
     Active Substance: LEVETIRACETAM
     Indication: EPILEPSY
     Dosage: UNK
     Dates: start: 20170812

REACTIONS (2)
  - Respiratory arrest [Fatal]
  - Off label use [Unknown]

NARRATIVE: CASE EVENT DATE: 20170812
